FAERS Safety Report 4984384-1 (Version None)
Quarter: 2006Q2

REPORT INFORMATION
  Report Type: 
  Country: None (occurrence: None)
  Receive Date: 20060427
  Receipt Date: 20060420
  Transmission Date: 20061013
  Serious: Yes (Other)
  Sender: FDA-Public Use
  Company Number: JP-JNJFOC-20060304788

PATIENT
  Sex: Male

DRUGS (5)
  1. ITRIZOLE [Suspect]
     Indication: TINEA PEDIS
     Route: 048
     Dates: start: 20050720, end: 20051204
  2. LORATADINE [Suspect]
     Indication: RHINITIS ALLERGIC
     Route: 048
     Dates: start: 20051104, end: 20051118
  3. HEPARINOID [Concomitant]
     Route: 061
     Dates: start: 20051122, end: 20051202
  4. KETOPROFEN [Concomitant]
     Dates: start: 20051122, end: 20051216
  5. FLUTICASONE PROPIONATE [Concomitant]
     Dates: start: 20051104

REACTIONS (3)
  - RHABDOMYOLYSIS [None]
  - RHINITIS ALLERGIC [None]
  - TINEA PEDIS [None]
